FAERS Safety Report 18739448 (Version 2)
Quarter: 2021Q2

REPORT INFORMATION
  Report Type: Spontaneous
  Country: JP (occurrence: JP)
  Receive Date: 20210114
  Receipt Date: 20210401
  Transmission Date: 20210717
  Serious: Yes (Death, Hospitalization, Other)
  Sender: FDA-Public Use
  Company Number: NVSJ2021JP000769

PATIENT
  Age: 54 Year
  Sex: Female

DRUGS (4)
  1. SANDOSTATIN [Concomitant]
     Active Substance: OCTREOTIDE ACETATE
     Indication: PRODUCT USED FOR UNKNOWN INDICATION
     Dosage: 30 MG
     Route: 065
     Dates: start: 20201019, end: 20210106
  2. AFINITOR [Suspect]
     Active Substance: EVEROLIMUS
     Indication: NEUROENDOCRINE TUMOUR
     Dosage: 10 MG
     Route: 048
     Dates: start: 20201016, end: 20201106
  3. AFINITOR [Suspect]
     Active Substance: EVEROLIMUS
     Dosage: 10 MG
     Route: 048
     Dates: end: 20210106
  4. AFINITOR [Suspect]
     Active Substance: EVEROLIMUS
     Dosage: 5 MG
     Route: 048
     Dates: start: 20201221

REACTIONS (10)
  - Bone pain [Unknown]
  - Vomiting [Recovered/Resolved]
  - Neuroendocrine tumour [Fatal]
  - Nausea [Recovered/Resolved]
  - Gastrointestinal haemorrhage [Unknown]
  - C-reactive protein increased [Unknown]
  - Malignant neoplasm progression [Fatal]
  - Anaemia [Recovering/Resolving]
  - Tumour associated fever [Unknown]
  - Psoas abscess [Recovered/Resolved]

NARRATIVE: CASE EVENT DATE: 202010
